FAERS Safety Report 6330983-4 (Version None)
Quarter: 2009Q3

REPORT INFORMATION
  Report Type: 
  Country: None (occurrence: None)
  Receive Date: 20090827
  Receipt Date: 20090821
  Transmission Date: 20100115
  Serious: Yes (Other)
  Sender: FDA-Public Use
  Company Number: US-ELI_LILLY_AND_COMPANY-US200908000694

PATIENT
  Sex: Male

DRUGS (7)
  1. HUMALOG MIX 75/25 [Suspect]
  2. METOPROLOL [Concomitant]
  3. CARTIA XT [Concomitant]
  4. ALLOPURINOL [Concomitant]
  5. LYRICA [Concomitant]
  6. ASPIRIN [Concomitant]
  7. FLOMAX [Concomitant]

REACTIONS (9)
  - BLOOD GLUCOSE FLUCTUATION [None]
  - BLOOD GLUCOSE INCREASED [None]
  - DRUG DISPENSING ERROR [None]
  - FEELING HOT [None]
  - HYPOGLYCAEMIA [None]
  - HYPOGLYCAEMIC UNCONSCIOUSNESS [None]
  - INCORRECT DOSE ADMINISTERED [None]
  - MYODESOPSIA [None]
  - WRONG TECHNIQUE IN DRUG USAGE PROCESS [None]
